FAERS Safety Report 5290791-2 (Version None)
Quarter: 2007Q2

REPORT INFORMATION
  Report Type: 
  Country: None (occurrence: None)
  Receive Date: 20070409
  Receipt Date: 20070328
  Transmission Date: 20071010
  Serious: Yes (Other)
  Sender: FDA-Public Use
  Company Number: JP-PFIZER INC-2007025545

PATIENT
  Age: 62 Year
  Sex: Female

DRUGS (5)
  1. NORVASC [Suspect]
     Dosage: DAILY DOSE:5MG
     Route: 048
     Dates: start: 20060517, end: 20070322
  2. WARFARIN POTASSIUM [Suspect]
     Route: 048
     Dates: start: 20020101, end: 20070322
  3. DIGOSIN [Concomitant]
     Route: 048
  4. MUCOSTA [Concomitant]
     Route: 048
  5. LIPITOR [Concomitant]
     Route: 048
     Dates: start: 20060905

REACTIONS (2)
  - DELUSION [None]
  - STRESS [None]
